FAERS Safety Report 8171069-6 (Version None)
Quarter: 2012Q1

REPORT INFORMATION
  Report Type: 
  Country: None (occurrence: None)
  Receive Date: 20120228
  Receipt Date: 20120120
  Transmission Date: 20120608
  Serious: Yes (Hospitalization)
  Sender: FDA-Public Use
  Company Number: PL-UCBSA-034979

PATIENT
  Age: 73 Year
  Sex: Female
  Weight: 68.5 kg

DRUGS (8)
  1. CERTOLIZUMAB PEGOL [Suspect]
     Route: 058
     Dates: start: 20060706, end: 20080101
  2. CERTOLIZUMAB PEGOL [Suspect]
     Route: 058
     Dates: start: 20100729, end: 20101118
  3. PREDNISONE [Concomitant]
     Indication: RHEUMATOID ARTHRITIS
     Route: 048
     Dates: start: 20080620
  4. AUGMENTIN '125' [Concomitant]
     Indication: INFECTION PROPHYLAXIS
     Route: 048
     Dates: start: 20110205, end: 20110214
  5. CERTOLIZUMAB PEGOL [Suspect]
     Indication: RHEUMATOID ARTHRITIS
     Dosage: CDP870-050:
     Route: 058
     Dates: start: 20060120, end: 20060705
  6. CERTOLIZUMAB PEGOL [Suspect]
     Route: 058
     Dates: start: 20080101, end: 20100715
  7. MAJAMIL [Concomitant]
     Indication: RHEUMATOID ARTHRITIS
     Route: 048
     Dates: start: 20050916
  8. METHOTREXATE [Concomitant]
     Indication: RHEUMATOID ARTHRITIS
     Route: 048
     Dates: start: 20080620

REACTIONS (1)
  - ABSCESS LIMB [None]
